FAERS Safety Report 8557633-0 (Version None)
Quarter: 2012Q3

REPORT INFORMATION
  Report Type: 
  Country: None (occurrence: None)
  Receive Date: 20120801
  Receipt Date: 20120727
  Transmission Date: 20120928
  Serious: Yes (Hospitalization)
  Sender: FDA-Public Use
  Company Number: CZ-ROCHE-1006060

PATIENT
  Sex: Female

DRUGS (13)
  1. MABTHERA [Suspect]
     Route: 041
     Dates: start: 20080627
  2. LORADUR MITE [Concomitant]
     Route: 048
  3. MABTHERA [Suspect]
     Indication: RHEUMATOID ARTHRITIS
     Route: 041
     Dates: end: 20110930
  4. CALCIUM [Concomitant]
  5. EGILOK [Concomitant]
     Route: 048
  6. AMPRILAN [Concomitant]
     Route: 050
  7. IBUPROFEN [Concomitant]
  8. PREDNISONE [Concomitant]
  9. BONIVA [Concomitant]
  10. ENELBIN [Concomitant]
  11. LETROX [Concomitant]
     Route: 048
  12. ARAVA [Concomitant]
  13. OMEPRAZOLE [Concomitant]
     Route: 050

REACTIONS (3)
  - HYPOGLYCAEMIA [None]
  - HYPOKALAEMIA [None]
  - DIABETES MELLITUS [None]
